FAERS Safety Report 11786280 (Version 2)
Quarter: 2015Q4

REPORT INFORMATION
  Report Type: Spontaneous
  Country: US (occurrence: US)
  Receive Date: 20151130
  Receipt Date: 20151222
  Transmission Date: 20160305
  Serious: No
  Sender: FDA-Public Use
  Company Number: ALCN2015US007143

PATIENT
  Age: 87 Year
  Sex: Male

DRUGS (1)
  1. PILOCARPINE HCL/EPINEPHRINE [Suspect]
     Active Substance: EPINEPHRINE\PILOCARPINE
     Indication: PRODUCT USED FOR UNKNOWN INDICATION
     Dosage: 1 GTT, QMO
     Route: 047

REACTIONS (1)
  - Vision blurred [Recovered/Resolved]
